FAERS Safety Report 14840144 (Version 1)
Quarter: 2018Q2

REPORT INFORMATION
  Report Type: Spontaneous
  Country: JP (occurrence: JP)
  Receive Date: 20180503
  Receipt Date: 20180503
  Transmission Date: 20180711
  Serious: Yes (Other)
  Sender: FDA-Public Use
  Company Number: JP-ACCORD-066365

PATIENT
  Age: 48 Year
  Sex: Male

DRUGS (2)
  1. CISPLATIN. [Suspect]
     Active Substance: CISPLATIN
     Indication: BLADDER CANCER STAGE III
     Dosage: CDDP 60 MG/M^2 WAS ADMINISTERED ON DAY 8
  2. TEGAFUR/GIMERACIL/OTERACIL POTASSIUM [Suspect]
     Active Substance: GIMERACIL\OTERACIL\TEGAFUR
     Indication: BLADDER CANCER STAGE III
     Dosage: CDDP 60 MG/M^2 WAS ADMINISTERED ON DAY 8.

REACTIONS (6)
  - Stomatitis [Recovering/Resolving]
  - Vomiting [Recovering/Resolving]
  - Decreased appetite [Unknown]
  - Nausea [Recovering/Resolving]
  - Faeces discoloured [Unknown]
  - Gastric ulcer [Recovering/Resolving]
